FAERS Safety Report 6712751-4 (Version None)
Quarter: 2010Q2

REPORT INFORMATION
  Report Type: 
  Country: None (occurrence: None)
  Receive Date: 20100506
  Receipt Date: 20100427
  Transmission Date: 20101027
  Serious: Yes (Other)
  Sender: FDA-Public Use
  Company Number: CH-JNJFOC-20100406765

PATIENT
  Age: 66 Year
  Sex: Male

DRUGS (9)
  1. HALDOL [Suspect]
     Indication: DRUG USE FOR UNKNOWN INDICATION
  2. HALDOL [Suspect]
  3. HALDOL [Suspect]
  4. HALDOL [Suspect]
  5. HALDOL [Suspect]
  6. HALDOL [Suspect]
  7. HALDOL [Suspect]
  8. HALDOL [Suspect]
  9. HALDOL [Suspect]

REACTIONS (1)
  - PLEUROTHOTONUS [None]
